FAERS Safety Report 19502387 (Version 1)
Quarter: 2021Q3

REPORT INFORMATION
  Report Type: Report from Study
  Country: CO (occurrence: CO)
  Receive Date: 20210707
  Receipt Date: 20210707
  Transmission Date: 20211014
  Serious: Yes (Other)
  Sender: FDA-Public Use
  Company Number: CO-TAKEDA-2021TUS037904

PATIENT
  Age: 32 Year
  Sex: Female
  Weight: 57 kg

DRUGS (2)
  1. ENOXAPARIN [Concomitant]
     Active Substance: ENOXAPARIN
     Indication: ANTICOAGULANT THERAPY
     Dosage: UNK UNK, QD
  2. VEDOLIZUMAB [Suspect]
     Active Substance: VEDOLIZUMAB
     Indication: COLITIS ULCERATIVE
     Dosage: 300 MILLIGRAM
     Route: 042
     Dates: start: 20190911

REACTIONS (6)
  - Vomiting [Unknown]
  - Headache [Recovered/Resolved]
  - Weight increased [Unknown]
  - Oral herpes [Recovered/Resolved]
  - Pregnancy [Recovered/Resolved]
  - Placenta praevia [Recovering/Resolving]

NARRATIVE: CASE EVENT DATE: 202104
